FAERS Safety Report 9981249 (Version 1)
Quarter: 2014Q1

REPORT INFORMATION
  Report Type: Spontaneous
  Country: GB (occurrence: GB)
  Receive Date: 20140307
  Receipt Date: 20140307
  Transmission Date: 20141002
  Serious: Yes (Life-Threatening)
  Sender: FDA-Public Use
  Company Number: GB-MYLANLABS-2014S1004350

PATIENT
  Age: 50 Year
  Sex: Male

DRUGS (3)
  1. DOXYCYCLINE [Suspect]
     Indication: INFECTION
     Route: 048
     Dates: start: 20131022, end: 20131029
  2. OMEPRAZOLE [Concomitant]
  3. LISINOPRIL [Concomitant]

REACTIONS (2)
  - Suicidal ideation [Recovering/Resolving]
  - Anxiety [Recovering/Resolving]
